FAERS Safety Report 5806240-9 (Version None)
Quarter: 2008Q3

REPORT INFORMATION
  Report Type: 
  Country: None (occurrence: None)
  Receive Date: 20080709
  Receipt Date: 20080709
  Transmission Date: 20090109
  Serious: Yes (Disabling)
  Sender: FDA-Public Use
  Company Number: None

PATIENT
  Sex: Male

DRUGS (2)
  1. SENSORCAINE [Suspect]
     Indication: ARTHROPATHY
     Dosage: 200ML 4ML/ HR 014
     Dates: start: 20051201, end: 20051203
  2. BREG PAIN CARE 3200 [Concomitant]

REACTIONS (1)
  - INJURY [None]
